FAERS Safety Report 6474178-2 (Version None)
Quarter: 2009Q4

REPORT INFORMATION
  Report Type: 
  Country: None (occurrence: None)
  Receive Date: 20091204
  Receipt Date: 20091123
  Transmission Date: 20100525
  Serious: Yes (Other)
  Sender: FDA-Public Use
  Company Number: PHEH2009US16693

PATIENT
  Sex: Female

DRUGS (8)
  1. GLEEVEC [Suspect]
     Indication: CHRONIC MYELOID LEUKAEMIA
     Dosage: 400 MG, QD
     Route: 048
     Dates: start: 20060901
  2. SYNTHROID [Concomitant]
     Dosage: UNK, UNK
  3. ATENOLOL [Concomitant]
     Dosage: UNK, UNK
  4. LISINOPRIL [Concomitant]
     Dosage: UNK, UNK
  5. NOVOLOG [Concomitant]
     Dosage: UNK, UNK
  6. FINASTERIDE [Concomitant]
     Dosage: UNK, UNK
  7. FISH OIL [Concomitant]
     Dosage: UNK, UNK
  8. ZINC [Concomitant]
     Dosage: UNK, UNK

REACTIONS (2)
  - DRY EYE [None]
  - ULCERATIVE KERATITIS [None]
